FAERS Safety Report 11921208 (Version 1)
Quarter: 2016Q1

REPORT INFORMATION
  Report Type: Spontaneous
  Country: US (occurrence: US)
  Receive Date: 20160115
  Receipt Date: 20160115
  Transmission Date: 20160526
  Serious: No
  Sender: FDA-Public Use
  Company Number: US-ASTELLAS-2015US042403

PATIENT
  Age: 63 Year
  Sex: Female

DRUGS (3)
  1. ARMOUR THYROID [Concomitant]
     Active Substance: THYROID, PORCINE
     Indication: PRODUCT USED FOR UNKNOWN INDICATION
     Dosage: UNK UNK, UNKNOWN FREQ.
     Route: 065
  2. MYRBETRIQ [Suspect]
     Active Substance: MIRABEGRON
     Indication: PRODUCT USED FOR UNKNOWN INDICATION
     Route: 065
     Dates: end: 201511
  3. LYRICA [Interacting]
     Active Substance: PREGABALIN
     Indication: SPINAL CORD INJURY
     Dosage: 75 MG, AT BEDTIME (AT NIGHT)
     Route: 065

REACTIONS (5)
  - Pain in extremity [Unknown]
  - Back pain [Unknown]
  - Drug interaction [Unknown]
  - Urinary tract inflammation [Unknown]
  - Gait disturbance [Unknown]

NARRATIVE: CASE EVENT DATE: 20151112
